FAERS Safety Report 4929202-2 (Version None)
Quarter: 2006Q1

REPORT INFORMATION
  Report Type: 
  Country: None (occurrence: None)
  Receive Date: 20060301
  Receipt Date: 20030605
  Transmission Date: 20060701
  Serious: Yes (Death, Other)
  Sender: FDA-Public Use
  Company Number: US-MERCK-0306USA00940

PATIENT
  Age: 69 Year
  Sex: Male
  Weight: 85 kg

DRUGS (7)
  1. VIOXX [Suspect]
     Route: 048
     Dates: start: 20000201
  2. VIOXX [Suspect]
     Route: 048
     Dates: start: 20010601
  3. SOMA [Concomitant]
     Route: 065
  4. MEDROL [Concomitant]
     Route: 065
  5. VICODIN [Concomitant]
     Route: 065
  6. ACIPHEX [Concomitant]
     Route: 065
  7. COUMADIN [Concomitant]
     Route: 065

REACTIONS (12)
  - ANGINA PECTORIS [None]
  - AORTIC ANEURYSM [None]
  - ARTERIOSCLEROSIS [None]
  - BENIGN PROSTATIC HYPERPLASIA [None]
  - BLOOD PRESSURE INCREASED [None]
  - CARDIOVASCULAR DISORDER [None]
  - CONVULSION [None]
  - CORONARY ARTERY THROMBOSIS [None]
  - EMPHYSEMA [None]
  - NECK PAIN [None]
  - ROTATOR CUFF SYNDROME [None]
  - VENOUS THROMBOSIS [None]
